FAERS Safety Report 12338339 (Version 2)
Quarter: 2016Q2

REPORT INFORMATION
  Report Type: Spontaneous
  Country: US (occurrence: US)
  Receive Date: 20160505
  Receipt Date: 20160517
  Transmission Date: 20160815
  Serious: Yes (Other)
  Sender: FDA-Public Use
  Company Number: US-FRI-1000083518

PATIENT
  Age: 80 Year
  Sex: Male

DRUGS (13)
  1. FLUTICASONE [Concomitant]
     Active Substance: FLUTICASONE\FLUTICASONE PROPIONATE
     Dosage: 4 DF
     Route: 045
  2. ENALAPRIL [Concomitant]
     Active Substance: ENALAPRIL
     Dosage: 10MG
  3. AZELASTINE [Concomitant]
     Active Substance: AZELASTINE
     Dosage: 0.15 PERCENT
  4. DILANTIN [Suspect]
     Active Substance: PHENYTOIN
  5. OMEPRAZOLE. [Concomitant]
     Active Substance: OMEPRAZOLE
     Dosage: 20MG
  6. ACETAMINOPHEN. [Concomitant]
     Active Substance: ACETAMINOPHEN
     Dosage: 650MG
  7. NAMENDA XR [Suspect]
     Active Substance: MEMANTINE HYDROCHLORIDE
     Indication: MEMORY IMPAIRMENT
     Dosage: 28MG
     Route: 048
     Dates: start: 2012
  8. PROCERA [Concomitant]
     Active Substance: DIETARY SUPPLEMENT
  9. CARBAMAZEPINE. [Suspect]
     Active Substance: CARBAMAZEPINE
  10. PROTONIX [Concomitant]
     Active Substance: PANTOPRAZOLE SODIUM
     Dosage: 40MG
  11. CERAPLEX [Concomitant]
     Active Substance: DIETARY SUPPLEMENT
  12. CLARITIN [Concomitant]
     Active Substance: LORATADINE
     Dosage: 10MG
  13. TESTOSTERONE. [Concomitant]
     Active Substance: TESTOSTERONE
     Route: 030

REACTIONS (21)
  - Fatigue [Not Recovered/Not Resolved]
  - Epilepsy [Not Recovered/Not Resolved]
  - Wound [Recovered/Resolved]
  - Affect lability [Not Recovered/Not Resolved]
  - Infection [Unknown]
  - Seizure [Unknown]
  - Mental disorder due to a general medical condition [Unknown]
  - Irritability [Not Recovered/Not Resolved]
  - Feeling of despair [Not Recovered/Not Resolved]
  - Clavicle fracture [Recovered/Resolved]
  - Contusion [Recovered/Resolved]
  - Amnesia [Not Recovered/Not Resolved]
  - Fall [Recovered/Resolved]
  - Hypogonadism [Unknown]
  - Abscess [Recovered/Resolved]
  - Dysphagia [Not Recovered/Not Resolved]
  - Dysphagia [Not Recovered/Not Resolved]
  - Hiccups [Recovered/Resolved]
  - Asthenia [Not Recovered/Not Resolved]
  - Weight decreased [Not Recovered/Not Resolved]
  - Lethargy [Not Recovered/Not Resolved]

NARRATIVE: CASE EVENT DATE: 2013
